FAERS Safety Report 9504551 (Version 1)
Quarter: 2013Q1

REPORT INFORMATION
  Report Type: Spontaneous
  Country: US (occurrence: None)
  Receive Date: 20130225
  Receipt Date: 20130225
  Transmission Date: 20140127
  Serious: No
  Sender: FDA-Public Use
  Company Number: 367808

PATIENT
  Age: 59 Year
  Sex: Male

DRUGS (1)
  1. VICTOZA [Suspect]
     Indication: TYPE 2 DIABETES MELLITUS
     Route: 058
     Dates: start: 201212

REACTIONS (7)
  - Dry mouth [None]
  - Fatigue [None]
  - Decreased appetite [None]
  - Nausea [None]
  - Dyspepsia [None]
  - Drug ineffective [None]
  - Diarrhoea [None]
